FAERS Safety Report 23719777 (Version 1)
Quarter: 2024Q2

REPORT INFORMATION
  Report Type: Spontaneous
  Country: EG (occurrence: EG)
  Receive Date: 20240408
  Receipt Date: 20240408
  Transmission Date: 20240715
  Serious: Yes (Hospitalization, Disabling, Other)
  Sender: FDA-Public Use
  Company Number: EG-BAXTER-2024BAX016136

PATIENT
  Age: 47 Year
  Sex: Female

DRUGS (5)
  1. CYCLOPHOSPHAMIDE [Suspect]
     Active Substance: CYCLOPHOSPHAMIDE
     Indication: Breast cancer female
     Dosage: 1000 MG, DILUTED WITH 250ML, NORMAL SALINE OVER 30 MINS, EVERY 21 DAYS, FIRST CYCLE
     Route: 065
     Dates: start: 20240113
  2. CYCLOPHOSPHAMIDE [Suspect]
     Active Substance: CYCLOPHOSPHAMIDE
     Dosage: UNK, 3RD CYCLE
     Route: 065
     Dates: start: 20240224
  3. DOXORUBICIN HYDROCHLORIDE [Suspect]
     Active Substance: DOXORUBICIN HYDROCHLORIDE
     Indication: Breast cancer female
     Dosage: 100 MG, DILUTED WITH 250ML, NORMAL SALINE OVER 15 MINS, EVERY 21 DAYS, FIRST CYCLE
     Route: 065
     Dates: start: 20240113
  4. SODIUM CHLORIDE [Suspect]
     Active Substance: SODIUM CHLORIDE
     Indication: Medication dilution
     Dosage: 250ML, USED TO DILUTE 1000 MG CYCLOPHOSPHAMIDE OVER 30 MINS, EVERY 21 DAYS, FIRST CYCLE
     Route: 065
     Dates: start: 20240113
  5. SODIUM CHLORIDE [Suspect]
     Active Substance: SODIUM CHLORIDE
     Dosage: 250ML, USED TO DILUTE 100 MG ADRICIN OVER 15 MINS, EVERY 21 DAYS, FIRST CYCLE
     Route: 065
     Dates: start: 20240113

REACTIONS (8)
  - Brain fog [Not Recovered/Not Resolved]
  - Memory impairment [Not Recovered/Not Resolved]
  - Disorientation [Not Recovered/Not Resolved]
  - Disturbance in attention [Not Recovered/Not Resolved]
  - Insomnia [Not Recovered/Not Resolved]
  - Abscess drainage [Not Recovered/Not Resolved]
  - Confusional state [Not Recovered/Not Resolved]
  - Perineal abscess [Not Recovered/Not Resolved]
